FAERS Safety Report 8232281-0 (Version None)
Quarter: 2012Q1

REPORT INFORMATION
  Report Type: 
  Country: None (occurrence: None)
  Receive Date: 20120323
  Receipt Date: 20120315
  Transmission Date: 20120608
  Serious: Yes (Life-Threatening, Hospitalization)
  Sender: FDA-Public Use
  Company Number: US-MILLENNIUM PHARMACEUTICALS, INC.-2011-05844

PATIENT
  Age: 18 Year
  Sex: Male
  Weight: 55.7 kg

DRUGS (7)
  1. MITOXANTRONE HYDROCHLORIDE [Suspect]
     Indication: ACUTE MYELOID LEUKAEMIA
     Dosage: 12 MG/M2, CYCLIC
     Route: 042
  2. VELCADE [Suspect]
     Indication: ACUTE MYELOID LEUKAEMIA
     Dosage: 1.3 MG/M2, CYCLIC
     Route: 040
     Dates: start: 20110819, end: 20111113
  3. CYTARABINE [Suspect]
     Dosage: 30 MG, CYCLIC
     Route: 037
     Dates: start: 20110819, end: 20111109
  4. CYTARABINE [Suspect]
     Indication: ACUTE MYELOID LEUKAEMIA
     Dosage: 100 MG/M2, CYCLIC
     Route: 042
     Dates: start: 20110819, end: 20111109
  5. ETOPOSIDE [Suspect]
     Indication: ACUTE MYELOID LEUKAEMIA
     Dosage: 100 MG/M2, CYCLIC
     Route: 042
     Dates: start: 20110819, end: 20111112
  6. ETOPOSIDE [Suspect]
     Dosage: 150 UNK, UNK
     Route: 042
  7. DAUNORUBICIN HYDROCHLORIDE [Suspect]
     Indication: ACUTE MYELOID LEUKAEMIA
     Dosage: 50 MG/M2, CYCLIC
     Route: 042
     Dates: start: 20110819

REACTIONS (5)
  - DYSPNOEA [None]
  - PAIN [None]
  - ENTEROCOLITIS [None]
  - HYPOTENSION [None]
  - HYPOXIA [None]
